FAERS Safety Report 8160138-2 (Version None)
Quarter: 2012Q1

REPORT INFORMATION
  Report Type: 
  Country: None (occurrence: None)
  Receive Date: 20120223
  Receipt Date: 20120214
  Transmission Date: 20120608
  Serious: Yes (Other)
  Sender: FDA-Public Use
  Company Number: US-ELI_LILLY_AND_COMPANY-US201202005012

PATIENT
  Age: 59 Year
  Sex: Male

DRUGS (8)
  1. LIPITOR [Concomitant]
     Dosage: UNK, UNKNOWN
  2. LISINOPRIL [Concomitant]
     Dosage: UNK, UNKNOWN
  3. EFFIENT [Suspect]
     Indication: STENT PLACEMENT
     Dosage: 10 MG, QD
  4. PRILOSEC [Concomitant]
     Dosage: UNK, UNKNOWN
  5. NITROGLYCERIN [Concomitant]
     Dosage: UNK, PRN
  6. ASPIRIN [Concomitant]
     Dosage: UNK, UNKNOWN
  7. WELLBUTRIN [Concomitant]
     Dosage: UNK, UNKNOWN
  8. METOPROLOL [Concomitant]
     Dosage: UNK, UNKNOWN

REACTIONS (2)
  - CARDIAC DISORDER [None]
  - DRUG EFFECT PROLONGED [None]
